FAERS Safety Report 21340046 (Version 1)
Quarter: 2022Q3

REPORT INFORMATION
  Report Type: Spontaneous
  Country: US (occurrence: US)
  Receive Date: 20220915
  Receipt Date: 20220915
  Transmission Date: 20221027
  Serious: No
  Sender: FDA-Public Use
  Company Number: US-CHIESI-2022CHF03702

PATIENT
  Age: 71 Year
  Sex: Female
  Weight: 58 kg

DRUGS (12)
  1. FERRIPROX [Suspect]
     Active Substance: DEFERIPRONE
     Indication: Haemochromatosis
     Dosage: 2000 MILLIGRAM, BID
     Route: 048
     Dates: start: 20220126
  2. FERRIPROX [Suspect]
     Active Substance: DEFERIPRONE
     Indication: Transfusion
  3. FERRIPROX [Suspect]
     Active Substance: DEFERIPRONE
     Indication: 5q minus syndrome
  4. FERRIPROX [Suspect]
     Active Substance: DEFERIPRONE
     Indication: Off label use
  5. BUSPIRONE [Concomitant]
     Active Substance: BUSPIRONE HYDROCHLORIDE
     Indication: Product used for unknown indication
     Dosage: UNK
  6. LEXAPRO [Concomitant]
     Active Substance: ESCITALOPRAM OXALATE
     Indication: Product used for unknown indication
     Dosage: UNK
  7. HUMIRA [Concomitant]
     Active Substance: ADALIMUMAB
     Indication: Product used for unknown indication
     Dosage: UNK
  8. OMEPRAZOLE [Concomitant]
     Active Substance: OMEPRAZOLE
     Indication: Product used for unknown indication
     Dosage: UNK
  9. PREDNISONE [Concomitant]
     Active Substance: PREDNISONE
     Indication: Product used for unknown indication
     Dosage: UNK
  10. ACYCLOVIR [Concomitant]
     Active Substance: ACYCLOVIR
     Indication: Product used for unknown indication
     Dosage: UNK
  11. PROLIA [Concomitant]
     Active Substance: DENOSUMAB
     Indication: Product used for unknown indication
     Dosage: UNK
  12. ARANESP [Concomitant]
     Active Substance: DARBEPOETIN ALFA
     Indication: Product used for unknown indication
     Dosage: UNK

REACTIONS (3)
  - Pain in extremity [Recovered/Resolved]
  - Off label use [Not Recovered/Not Resolved]
  - Off label use [Not Recovered/Not Resolved]

NARRATIVE: CASE EVENT DATE: 20220126
